FAERS Safety Report 6063223-4 (Version None)
Quarter: 2009Q1

REPORT INFORMATION
  Report Type: 
  Country: None (occurrence: None)
  Receive Date: 20090203
  Receipt Date: 20090127
  Transmission Date: 20090719
  Serious: Yes (Hospitalization)
  Sender: FDA-Public Use
  Company Number: GB-PFIZER INC-2009153390

PATIENT

DRUGS (1)
  1. LYRICA [Suspect]

REACTIONS (2)
  - DYSPHAGIA [None]
  - SURGERY [None]
